FAERS Safety Report 7390012-0 (Version None)
Quarter: 2011Q2

REPORT INFORMATION
  Report Type: 
  Country: None (occurrence: None)
  Receive Date: 20110401
  Receipt Date: 20110331
  Transmission Date: 20111010
  Serious: Yes (Other)
  Sender: FDA-Public Use
  Company Number: US-AMGEN-USASP2011015127

PATIENT
  Age: 74 Year
  Sex: Female
  Weight: 64.853 kg

DRUGS (6)
  1. KLONOPIN [Concomitant]
     Dosage: 0.5 MG, PRN
     Dates: start: 20050608
  2. PRINIVIL                           /00894001/ [Concomitant]
     Dosage: 10 MG, QD
     Route: 048
     Dates: start: 20050608
  3. GLUCOSAMINE + CHONDROITIN [Concomitant]
     Dosage: UNK
     Dates: start: 20060109
  4. SYNTHROID [Concomitant]
     Dosage: 0.112 MG, QD
     Dates: start: 20041101
  5. NPLATE [Suspect]
     Indication: IDIOPATHIC THROMBOCYTOPENIC PURPURA
     Dosage: 1 A?G/KG, QWK
     Route: 058
     Dates: start: 20070209, end: 20091230
  6. TENORMIN [Concomitant]
     Dosage: 50 MG, QD
     Route: 048
     Dates: start: 20050608

REACTIONS (2)
  - ACUTE MYELOID LEUKAEMIA [None]
  - MYELODYSPLASTIC SYNDROME TRANSFORMATION [None]
